FAERS Safety Report 7796899-1 (Version None)
Quarter: 2011Q4

REPORT INFORMATION
  Report Type: 
  Country: None (occurrence: None)
  Receive Date: 20111005
  Receipt Date: 20110924
  Transmission Date: 20120403
  Serious: No
  Sender: FDA-Public Use
  Company Number: US-B.I. PHARMACEUTICALS,INC./RIDGEFIELD-2011-BP-22853BP

PATIENT
  Age: 96 Year
  Sex: Female

DRUGS (6)
  1. DIGOXIN [Concomitant]
     Indication: HYPERTENSION
     Route: 048
  2. PRADAXA [Suspect]
     Indication: ANTICOAGULANT THERAPY
     Dosage: 300 MG
     Route: 048
     Dates: start: 20110901
  3. FOSAMAX [Concomitant]
     Indication: OSTEOPOROSIS
     Route: 048
  4. COUMADIN [Concomitant]
     Indication: ANTICOAGULANT THERAPY
     Dosage: 3 MG
     Route: 048
     Dates: end: 20110901
  5. METOPROLOL TARTRATE [Concomitant]
     Indication: HYPERTENSION
     Route: 048
  6. LISINOPRIL [Concomitant]
     Indication: HYPERTENSION
     Route: 048

REACTIONS (3)
  - RASH ERYTHEMATOUS [None]
  - WOUND SECRETION [None]
  - INFECTION [None]
